FAERS Safety Report 18196474 (Version 1)
Quarter: 2020Q3

REPORT INFORMATION
  Report Type: Spontaneous
  Country: US (occurrence: US)
  Receive Date: 20200825
  Receipt Date: 20200825
  Transmission Date: 20201103
  Serious: Yes (Other)
  Sender: FDA-Public Use
  Company Number: None

PATIENT
  Age: 46 Year
  Sex: Female
  Weight: 89.1 kg

DRUGS (8)
  1. DULOXETINE HCL [Concomitant]
     Active Substance: DULOXETINE HYDROCHLORIDE
  2. WOMEN^S ONE A DAY MULTIVITAMIN [Concomitant]
  3. LAMOTRIGINE. [Concomitant]
     Active Substance: LAMOTRIGINE
  4. PROPRANOLOL [Concomitant]
     Active Substance: PROPRANOLOL HYDROCHLORIDE
  5. BUSPAR [Concomitant]
     Active Substance: BUSPIRONE HYDROCHLORIDE
  6. VITAMIN D SUPPLEMENT [Concomitant]
     Active Substance: VITAMIN D NOS
  7. DULOXETINE HCL DR 60MG [Suspect]
     Active Substance: DULOXETINE HYDROCHLORIDE
     Indication: DEPRESSION
     Dosage: ?
     Route: 048
     Dates: start: 20140514, end: 20200816
  8. SINGULAIR (MONTELUSKAT SODIUM) [Concomitant]

REACTIONS (1)
  - Withdrawal syndrome [None]

NARRATIVE: CASE EVENT DATE: 20200825
